FAERS Safety Report 6778956-1 (Version None)
Quarter: 2010Q2

REPORT INFORMATION
  Report Type: 
  Country: None (occurrence: None)
  Receive Date: 20100618
  Receipt Date: 20100609
  Transmission Date: 20101027
  Serious: Yes (Life-Threatening, Hospitalization)
  Sender: FDA-Public Use
  Company Number: SE-KINGPHARMUSA00001-K201000719

PATIENT
  Age: 69 Year
  Sex: Female

DRUGS (6)
  1. ALTACE [Suspect]
     Indication: ESSENTIAL HYPERTENSION
     Dosage: 5 MG, QD
     Dates: end: 20100405
  2. HYDROCHLOROTHIAZIDE [Suspect]
     Indication: ESSENTIAL HYPERTENSION
     Dosage: 25 MG, QD
     Dates: end: 20100405
  3. IMUREK [Suspect]
     Indication: COLITIS ULCERATIVE
     Dosage: 50 MG, BID
     Route: 048
  4. CONCOR [Concomitant]
  5. ATORVASTATIN [Concomitant]
  6. ASPIRIN [Concomitant]

REACTIONS (17)
  - BEDRIDDEN [None]
  - CHILLS [None]
  - DECREASED APPETITE [None]
  - DEHYDRATION [None]
  - DIZZINESS POSTURAL [None]
  - DYSURIA [None]
  - FLANK PAIN [None]
  - GENERAL PHYSICAL HEALTH DETERIORATION [None]
  - HYPONATRAEMIA [None]
  - HYPOVOLAEMIA [None]
  - PCO2 DECREASED [None]
  - POLLAKIURIA [None]
  - PYELONEPHRITIS [None]
  - PYREXIA [None]
  - RENAL FAILURE ACUTE [None]
  - SEPSIS [None]
  - WHITE BLOOD CELL COUNT INCREASED [None]
